FAERS Safety Report 23592769 (Version 1)
Quarter: 2024Q1

REPORT INFORMATION
  Report Type: Report from Study
  Country: US (occurrence: US)
  Receive Date: 20240304
  Receipt Date: 20240304
  Transmission Date: 20240409
  Serious: Yes (Death)
  Sender: FDA-Public Use
  Company Number: US-BAYER-2024A032235

PATIENT
  Age: 54 Year
  Sex: Female
  Weight: 106.58 kg

DRUGS (14)
  1. ADEMPAS [Suspect]
     Active Substance: RIOCIGUAT
     Indication: Pulmonary arterial hypertension
     Dosage: 0.5 MG, TID
     Route: 048
     Dates: start: 20231206
  2. VITAMIN D2 [Concomitant]
     Active Substance: ERGOCALCIFEROL
  3. BREO ELLIPTA [Concomitant]
     Active Substance: FLUTICASONE FUROATE\VILANTEROL TRIFENATATE
  4. FIORICET [Concomitant]
     Active Substance: ACETAMINOPHEN\BUTALBITAL\CAFFEINE
  5. ALBUTEROL SULFATE [Concomitant]
     Active Substance: ALBUTEROL SULFATE
  6. PREGABALIN [Concomitant]
     Active Substance: PREGABALIN
  7. TRAMADOL HCL [Concomitant]
     Active Substance: TRAMADOL HYDROCHLORIDE
  8. OXYGEN [Concomitant]
     Active Substance: OXYGEN
  9. PREDNISONE [Concomitant]
     Active Substance: PREDNISONE
  10. FUROSEMIDE [Concomitant]
     Active Substance: FUROSEMIDE
  11. MAGNESIUM [Concomitant]
     Active Substance: MAGNESIUM
  12. TYLENOL [Concomitant]
     Active Substance: ACETAMINOPHEN
  13. UPTRAVI [Concomitant]
     Active Substance: SELEXIPAG
  14. VELETRI [Concomitant]
     Active Substance: EPOPROSTENOL

REACTIONS (1)
  - Death [Fatal]
